FAERS Safety Report 4961853-1 (Version None)
Quarter: 2006Q1

REPORT INFORMATION
  Report Type: 
  Country: None (occurrence: None)
  Receive Date: 20060329
  Receipt Date: 20060317
  Transmission Date: 20060701
  Serious: Yes (Hospitalization)
  Sender: FDA-Public Use
  Company Number: 2006017246

PATIENT
  Age: 12 Year
  Sex: Male

DRUGS (4)
  1. BENADRYL ALLERGY/SINUS (DIPHENHYDRAMINE, PSEUDOEPHEDRINE) [Suspect]
     Indication: HYPERSENSITIVITY
     Dosage: ONCE A DAY, ORAL
     Route: 048
     Dates: start: 20060202, end: 20060204
  2. MOTRIN [Suspect]
     Dosage: ORAL
     Route: 048
  3. MULTIVITAMINS (ASCORBIC ACID, ERGOCALCIFEROL, FOLIC ACID, NICOTINAMIDE [Concomitant]
  4. ACCUHIST LA (ATROPINE SULFATE, CHLORPHENAMINE MALEATE, HYOSCINE HYDROB [Concomitant]

REACTIONS (5)
  - ABASIA [None]
  - HALLUCINATION, VISUAL [None]
  - MYDRIASIS [None]
  - PRESSURE OF SPEECH [None]
  - PYREXIA [None]
